FAERS Safety Report 7960971-3 (Version None)
Quarter: 2011Q4

REPORT INFORMATION
  Report Type: 
  Country: None (occurrence: None)
  Receive Date: 20111202
  Receipt Date: 20111123
  Transmission Date: 20120403
  Serious: Yes (Congenital Anomaly, Other)
  Sender: FDA-Public Use
  Company Number: 2011MA016950

PATIENT
  Age: 28 Day
  Sex: Male

DRUGS (5)
  1. LORAZEPAM [Concomitant]
  2. FOLIO FORTE [Concomitant]
  3. VOMEX A [Concomitant]
  4. SERTRALINE HYDROCHLORIDE [Suspect]
     Indication: FOETAL EXPOSURE DURING PREGNANCY
     Dosage: 75 MG; TRPL
     Route: 064
     Dates: start: 20101220, end: 20110802
  5. SERTRALINE HYDROCHLORIDE [Suspect]
     Indication: FOETAL EXPOSURE DURING PREGNANCY
     Dosage: 75 MG; TRPL
     Route: 064
     Dates: start: 20101220, end: 20110802

REACTIONS (11)
  - ASPARTATE AMINOTRANSFERASE INCREASED [None]
  - FOETAL EXPOSURE DURING PREGNANCY [None]
  - CAESAREAN SECTION [None]
  - NEONATAL RESPIRATORY FAILURE [None]
  - LARGE FOR DATES BABY [None]
  - HAEMANGIOMA CONGENITAL [None]
  - DRUG WITHDRAWAL SYNDROME NEONATAL [None]
  - ATRIAL SEPTAL DEFECT [None]
  - BLOOD LACTATE DEHYDROGENASE INCREASED [None]
  - NEONATAL RESPIRATORY DISTRESS SYNDROME [None]
  - PETECHIAE [None]
